FAERS Safety Report 15385138 (Version 1)
Quarter: 2018Q3

REPORT INFORMATION
  Report Type: Spontaneous
  Country: US (occurrence: US)
  Receive Date: 20180907
  Receipt Date: 20180907
  Transmission Date: 20181010
  Serious: Yes (Other)
  Sender: FDA-Public Use
  Company Number: None

PATIENT
  Age: 73 Year
  Sex: Male
  Weight: 99.79 kg

DRUGS (1)
  1. ENOXAPARIN [Suspect]
     Active Substance: ENOXAPARIN
     Indication: RETROPERITONEAL HAEMATOMA
     Dates: start: 20180321, end: 20180325

REACTIONS (3)
  - Retroperitoneal haematoma [None]
  - Haematoma [None]
  - Haemorrhage [None]

NARRATIVE: CASE EVENT DATE: 20180518
